FAERS Safety Report 23267810 (Version 1)
Quarter: 2023Q4

REPORT INFORMATION
  Report Type: Spontaneous
  Country: CZ (occurrence: None)
  Receive Date: 20231206
  Receipt Date: 20231206
  Transmission Date: 20240109
  Serious: Yes (Life-Threatening, Hospitalization, Other)
  Sender: FDA-Public Use
  Company Number: CZ-INFO-20230236

PATIENT
  Age: 51 Year
  Sex: Female

DRUGS (14)
  1. BROMAZEPAM [Concomitant]
     Active Substance: BROMAZEPAM
  2. MIDAZOLAM [Concomitant]
     Active Substance: MIDAZOLAM
  3. SUFENTANIL [Interacting]
     Active Substance: SUFENTANIL
     Indication: Sedation
  4. LEVOFLOXACIN [Interacting]
     Active Substance: LEVOFLOXACIN
     Indication: Antibiotic therapy
  5. CODEINE [Interacting]
     Active Substance: CODEINE
  6. METOCLOPRAMIDE [Interacting]
     Active Substance: METOCLOPRAMIDE
  7. BUDESONIDE 160ug, FORMOTEROL 4.5ug [Concomitant]
     Indication: Asthma
     Dosage: ()
     Route: 055
  8. MELOXICAM [Concomitant]
     Active Substance: MELOXICAM
     Indication: Analgesic therapy
  9. IVABRADINE [Concomitant]
     Active Substance: IVABRADINE
     Indication: Sinus tachycardia
  10. TRAMADOL [Interacting]
     Active Substance: TRAMADOL\TRAMADOL HYDROCHLORIDE
     Indication: Analgesic therapy
  11. CHLORPROTHIXENE HYDROCHLORIDE [Concomitant]
     Active Substance: CHLORPROTHIXENE HYDROCHLORIDE
  12. INDOMETHACIN [Concomitant]
     Active Substance: INDOMETHACIN
     Indication: Analgesic therapy
  13. PAROXETINE [Interacting]
     Active Substance: PAROXETINE
  14. TRAZODONE [Interacting]
     Active Substance: TRAZODONE HYDROCHLORIDE

REACTIONS (2)
  - Serotonin syndrome [Unknown]
  - Drug interaction [Unknown]
